FAERS Safety Report 5747429-7 (Version None)
Quarter: 2008Q2

REPORT INFORMATION
  Report Type: 
  Country: None (occurrence: None)
  Receive Date: 20080523
  Receipt Date: 20080514
  Transmission Date: 20081010
  Serious: Yes (Hospitalization)
  Sender: FDA-Public Use
  Company Number: US-WYE-H04088408

PATIENT
  Sex: Female
  Weight: 69.46 kg

DRUGS (20)
  1. DESVENLAFAXINE SUCCINATE MONOHYDRATE [Suspect]
     Indication: DIABETIC NEUROPATHY
     Route: 048
     Dates: start: 20071026, end: 20080420
  2. LEVEMIR [Concomitant]
     Indication: TYPE 2 DIABETES MELLITUS
     Dosage: UNKNOWN
     Dates: start: 20070301
  3. NOVOLOG [Concomitant]
     Indication: TYPE 2 DIABETES MELLITUS
     Dosage: UNKNOWN
     Dates: start: 20030101
  4. DIOVAN [Concomitant]
     Indication: HYPERTENSION
     Dates: start: 20030101
  5. LANOXIN [Concomitant]
     Indication: CARDIAC FAILURE CONGESTIVE
     Dates: start: 19990101
  6. DETROL [Concomitant]
     Indication: URINARY INCONTINENCE
     Dosage: UNKNOWN
     Dates: start: 19970101
  7. LASIX [Concomitant]
     Indication: HYPERTENSION
     Dates: start: 19990101
  8. NEXIUM [Concomitant]
     Indication: GASTROOESOPHAGEAL REFLUX DISEASE
     Dosage: UNKNOWN
     Dates: start: 19970101
  9. GLYCERYL TRINITRATE [Concomitant]
     Dosage: UNKNOWN
     Dates: start: 19990101
  10. NYSTATIN [Concomitant]
     Indication: FUNGAL INFECTION
     Dosage: UNKNOWN
     Dates: start: 20050101
  11. TRIAMCINOLONE ACETONIDE [Concomitant]
     Indication: CHRONIC OBSTRUCTIVE PULMONARY DISEASE
     Dosage: UNKNOWN
     Dates: start: 20050101
  12. FENOFIBRATE [Concomitant]
     Indication: HYPERLIPIDAEMIA
     Dosage: UNKNOWN
     Dates: start: 19990101
  13. TYLENOL PM [Concomitant]
     Indication: DIABETIC NEUROPATHY
     Dosage: UNKNOWN
     Dates: start: 19900101
  14. VARENICLINE [Concomitant]
     Indication: EX-SMOKER
     Dosage: UNKNOWN
     Dates: start: 20071219, end: 20080421
  15. ASCORBIC ACID/ERGOCALCIFEROL/FOLIC ACID/NICOTINAMIDE/PANTHENOL/RETINOL [Concomitant]
     Indication: MEDICAL DIET
     Dosage: UNKNOWN
     Dates: start: 19700101
  16. CLOBETASOL PROPIONATE [Concomitant]
     Indication: PSORIASIS
     Dosage: UNKNOWN
     Dates: start: 20060101
  17. LIPITOR [Concomitant]
     Indication: HYPERLIPIDAEMIA
     Dosage: UNKNOWN
     Dates: start: 19990101
  18. METRONIDAZOLE HCL [Concomitant]
     Indication: ROSACEA
     Dosage: UNKNOWN
     Dates: start: 19970101
  19. ACETYLSALICYLIC ACID SRT [Concomitant]
  20. DILTIAZEM [Concomitant]
     Indication: HYPERTENSION
     Dates: start: 19990101

REACTIONS (1)
  - MENTAL STATUS CHANGES [None]
